FAERS Safety Report 5443855-4 (Version None)
Quarter: 2007Q3

REPORT INFORMATION
  Report Type: 
  Country: None (occurrence: None)
  Receive Date: 20070905
  Receipt Date: 20070829
  Transmission Date: 20080115
  Serious: No
  Sender: FDA-Public Use
  Company Number: US-BOEHRINGER INGELHEIM PHARMACEUTICALS, INC.-2007-BP-16988BP

PATIENT
  Age: 51 Year
  Sex: Female

DRUGS (7)
  1. COMBIVENT [Suspect]
     Indication: CHRONIC OBSTRUCTIVE PULMONARY DISEASE
     Route: 055
     Dates: start: 20070101
  2. COMBIVENT [Suspect]
     Indication: BRONCHITIS
  3. COMBIVENT [Suspect]
     Indication: ASTHMA
  4. SYNTHROID [Concomitant]
  5. ADVAIR DISKUS 100/50 [Concomitant]
  6. PREDNISONE [Concomitant]
  7. LEVAQUIN [Concomitant]

REACTIONS (5)
  - BRONCHITIS [None]
  - COUGH [None]
  - DYSPNOEA [None]
  - LUNG NEOPLASM [None]
  - PNEUMONIA [None]
